FAERS Safety Report 5829171-7 (Version None)
Quarter: 2008Q3

REPORT INFORMATION
  Report Type: 
  Country: None (occurrence: None)
  Receive Date: 20080731
  Receipt Date: 20080722
  Transmission Date: 20090109
  Serious: Yes (Other)
  Sender: FDA-Public Use
  Company Number: FR-ABBOTT-08P-056-0465974-00

PATIENT
  Sex: Female

DRUGS (7)
  1. HUMIRA [Suspect]
     Indication: RHEUMATOID ARTHRITIS
     Route: 058
     Dates: start: 20080303, end: 20080602
  2. HUMIRA [Suspect]
     Route: 058
  3. METHOTREXATE [Concomitant]
     Indication: RHEUMATOID ARTHRITIS
     Route: 048
  4. VENLAFAXINE HCL [Concomitant]
     Indication: MAJOR DEPRESSION
     Route: 048
     Dates: start: 20060101
  5. PANTOPRAZOLE SODIUM [Concomitant]
     Indication: ULCER
     Route: 048
     Dates: start: 20070414
  6. FLUCTICASONE-SALMETEROL [Concomitant]
     Indication: COUGH
     Dosage: 250/50 MCG
     Route: 055
     Dates: start: 20070101
  7. PARACETAMOL, CAFEINE, DEXTROPROPOXYPHENE [Concomitant]
     Indication: PAIN
     Route: 048
     Dates: start: 20060209

REACTIONS (5)
  - GENITAL PAIN [None]
  - HERPES ZOSTER [None]
  - MUSCULOSKELETAL PAIN [None]
  - NEURALGIA [None]
  - SCIATICA [None]
